FAERS Safety Report 10214332 (Version 2)
Quarter: 2014Q2

REPORT INFORMATION
  Report Type: Spontaneous
  Country: US (occurrence: US)
  Receive Date: 20140603
  Receipt Date: 20140612
  Transmission Date: 20141212
  Serious: Yes (Death, Hospitalization)
  Sender: FDA-Public Use
  Company Number: US-B.I. PHARMACEUTICALS,INC./RIDGEFIELD-2014-BI-24557BP

PATIENT
  Age: 79 Year
  Sex: Female

DRUGS (7)
  1. PRADAXA [Suspect]
     Indication: ATRIAL FIBRILLATION
     Dosage: 300 MG
     Route: 048
     Dates: start: 2012
  2. DIOVAN [Concomitant]
     Route: 065
  3. LEVOTHYROXINE [Concomitant]
     Route: 065
  4. PRAVASTATIN [Concomitant]
     Route: 065
  5. NEXIUM [Concomitant]
     Route: 065
  6. COREG [Concomitant]
     Route: 065
  7. FOSAMAX [Concomitant]
     Route: 065

REACTIONS (1)
  - Haemorrhage intracranial [Fatal]
